FAERS Safety Report 14011421 (Version 1)
Quarter: 2017Q3

REPORT INFORMATION
  Report Type: Report from Study
  Country: BR (occurrence: BR)
  Receive Date: 20170926
  Receipt Date: 20170926
  Transmission Date: 20171128
  Serious: Yes (Hospitalization, Other)
  Sender: FDA-Public Use
  Company Number: PHHY2017BR140410

PATIENT
  Sex: Female
  Weight: 51 kg

DRUGS (5)
  1. ONBREZ BREEZHALER [Suspect]
     Active Substance: INDACATEROL
     Indication: CARDIAC DISORDER
  2. ONBREZ BREEZHALER [Suspect]
     Active Substance: INDACATEROL
     Indication: RESPIRATORY FAILURE
     Dosage: 150 UG, QD
     Route: 055
  3. ENTRESTO [Suspect]
     Active Substance: SACUBITRIL\VALSARTAN
     Indication: PERIPHERAL SWELLING
  4. ONBREZ BREEZHALER [Suspect]
     Active Substance: INDACATEROL
     Indication: DYSPNOEA
  5. ENTRESTO [Suspect]
     Active Substance: SACUBITRIL\VALSARTAN
     Indication: CARDIAC FAILURE
     Dosage: UNK, Q12H
     Route: 065

REACTIONS (6)
  - Wheezing [Unknown]
  - Secretion discharge [Unknown]
  - Respiratory failure [Unknown]
  - Product use in unapproved indication [Unknown]
  - Dyspnoea [Unknown]
  - Malaise [Recovering/Resolving]
